FAERS Safety Report 10156196 (Version 1)
Quarter: 2014Q2

REPORT INFORMATION
  Report Type: Spontaneous
  Country: US (occurrence: US)
  Receive Date: 20140506
  Receipt Date: 20140506
  Transmission Date: 20141212
  Serious: Yes (Life-Threatening, Hospitalization, Other)
  Sender: FDA-Public Use
  Company Number: PHHY2014US052911

PATIENT
  Age: 36 Year
  Sex: Female

DRUGS (1)
  1. VERAPAMIL [Suspect]
     Route: 048

REACTIONS (7)
  - Anuria [Recovered/Resolved]
  - Metabolic acidosis [Recovered/Resolved]
  - Hypotension [Recovered/Resolved]
  - Hyperlipidaemia [Recovered/Resolved]
  - Acute respiratory distress syndrome [Recovered/Resolved]
  - Pleural effusion [Recovered/Resolved]
  - Overdose [Unknown]
